FAERS Safety Report 15229232 (Version 1)
Quarter: 2018Q3

REPORT INFORMATION
  Report Type: Spontaneous
  Country: US (occurrence: US)
  Receive Date: 20180801
  Receipt Date: 20180801
  Transmission Date: 20181010
  Serious: Yes (Other)
  Sender: FDA-Public Use
  Company Number: US-VIFOR (INTERNATIONAL) INC.-VIT-2016-06513

PATIENT
  Sex: Female

DRUGS (19)
  1. VELTASSA [Suspect]
     Active Substance: PATIROMER
     Indication: HYPERKALAEMIA
     Route: 048
     Dates: start: 20160224
  2. XANAX [Concomitant]
     Active Substance: ALPRAZOLAM
  3. PROLIA [Concomitant]
     Active Substance: DENOSUMAB
  4. COLACE [Concomitant]
     Active Substance: DOCUSATE SODIUM
  5. FIBERCON [Concomitant]
     Active Substance: CALCIUM POLYCARBOPHIL
  6. FOLIC ACID. [Concomitant]
     Active Substance: FOLIC ACID
  7. PLAQUENIL [Concomitant]
     Active Substance: HYDROXYCHLOROQUINE SULFATE
  8. MELATONIN [Concomitant]
     Active Substance: MELATONIN
  9. SIMVASTATIN. [Concomitant]
     Active Substance: SIMVASTATIN
  10. CITRACAL + D [Concomitant]
     Active Substance: CALCIUM CITRATE\VITAMIN D
  11. CALCITRIOL. [Concomitant]
     Active Substance: CALCITRIOL
  12. CARVEDILOL. [Concomitant]
     Active Substance: CARVEDILOL
  13. URSODIOL. [Concomitant]
     Active Substance: URSODIOL
  14. ARANESP [Concomitant]
     Active Substance: DARBEPOETIN ALFA
  15. OMEPRAZOLE. [Concomitant]
     Active Substance: OMEPRAZOLE
  16. CELEXA [Concomitant]
     Active Substance: CITALOPRAM HYDROBROMIDE
  17. DICYCLOVERINE HYDROCHLORIDE [Concomitant]
     Active Substance: DICYCLOMINE HYDROCHLORIDE
  18. SODIUM BICARBONATE. [Concomitant]
     Active Substance: SODIUM BICARBONATE
  19. ACETYLSALICYLIC ACID [Concomitant]
     Active Substance: ASPIRIN

REACTIONS (4)
  - Renal impairment [Unknown]
  - Drug dose omission [Unknown]
  - Urinary tract infection [Unknown]
  - Nasopharyngitis [Unknown]

NARRATIVE: CASE EVENT DATE: 2016
